FAERS Safety Report 7123864-X (Version None)
Quarter: 2010Q4

REPORT INFORMATION
  Report Type: 
  Country: None (occurrence: None)
  Receive Date: 20101125
  Receipt Date: 20101122
  Transmission Date: 20110411
  Serious: Yes (Life-Threatening, Other)
  Sender: FDA-Public Use
  Company Number: PHHY2010JP67483

PATIENT
  Sex: Female
  Weight: 37 kg

DRUGS (9)
  1. SANDIMMUNE [Suspect]
     Indication: COLITIS ULCERATIVE
     Dosage: 250 MG DAILY
     Route: 041
     Dates: start: 20100217, end: 20100304
  2. PREDNISOLONE [Suspect]
     Indication: COLITIS ULCERATIVE
     Dosage: 15 MG, TID
     Route: 042
     Dates: start: 20100108, end: 20100306
  3. METHYLPREDNISOLONE [Concomitant]
  4. PENTASA [Concomitant]
     Indication: COLITIS ULCERATIVE
     Dosage: 6 DF
     Route: 048
     Dates: start: 20100118, end: 20100307
  5. SOLU-MEDROL [Concomitant]
     Dosage: 1000 MG X 3 DAYS
  6. MIYA-BM [Concomitant]
     Dosage: 3 DF
     Route: 048
     Dates: start: 20100118, end: 20100307
  7. THYRADIN [Concomitant]
     Indication: THYROID HORMONE REPLACEMENT THERAPY
     Dosage: 0.5 G
     Route: 048
     Dates: start: 20100210, end: 20100319
  8. FLAGYL [Concomitant]
     Dosage: 2 DF
     Route: 048
     Dates: start: 20100205, end: 20100301
  9. OMEPRAL [Concomitant]
     Dosage: 20 MG
     Route: 042
     Dates: start: 20100130, end: 20100214

REACTIONS (14)
  - ABDOMINAL PAIN [None]
  - ALPHA TUMOUR NECROSIS FACTOR INCREASED [None]
  - ANXIETY [None]
  - BLOOD THYROID STIMULATING HORMONE DECREASED [None]
  - CANDIDIASIS [None]
  - COLECTOMY TOTAL [None]
  - CSF GRANULOCYTE COUNT ABNORMAL [None]
  - DEPRESSION [None]
  - DEVICE RELATED INFECTION [None]
  - HYPOPITUITARISM [None]
  - INSOMNIA [None]
  - INTERLEUKIN LEVEL INCREASED [None]
  - PANCREATITIS ACUTE [None]
  - PYREXIA [None]
